FAERS Safety Report 24584757 (Version 3)
Quarter: 2025Q1

REPORT INFORMATION
  Report Type: Other
  Country: CA (occurrence: CA)
  Receive Date: 20241106
  Receipt Date: 20250319
  Transmission Date: 20250408
  Serious: Yes (Other)
  Sender: CHIESI
  Company Number: CA-AMRYT PHARMACEUTICALS DAC-AEGR007353

PATIENT
  Age: 45 Year
  Sex: Female

DRUGS (16)
  1. JUXTAPID [Suspect]
     Active Substance: LOMITAPIDE MESYLATE
     Indication: Type IIa hyperlipidaemia
     Route: 065
  2. JUXTAPID [Suspect]
     Active Substance: LOMITAPIDE MESYLATE
     Route: 065
  3. JUXTAPID [Suspect]
     Active Substance: LOMITAPIDE MESYLATE
     Route: 065
  4. JUXTAPID [Suspect]
     Active Substance: LOMITAPIDE MESYLATE
     Route: 065
  5. JUXTAPID [Suspect]
     Active Substance: LOMITAPIDE MESYLATE
     Route: 065
  6. JUXTAPID [Suspect]
     Active Substance: LOMITAPIDE MESYLATE
  7. ATORVASTATIN CALCIUM [Suspect]
     Active Substance: ATORVASTATIN CALCIUM
     Indication: Type IIa hyperlipidaemia
     Dosage: 1 DOSAGE FORM, QD
     Route: 065
  8. ATORVASTATIN CALCIUM [Suspect]
     Active Substance: ATORVASTATIN CALCIUM
     Route: 065
  9. EZETIMIBE [Suspect]
     Active Substance: EZETIMIBE
     Indication: Type IIa hyperlipidaemia
     Dosage: 1 DOSAGE FORM, QD
     Route: 065
  10. EZETIMIBE [Suspect]
     Active Substance: EZETIMIBE
     Route: 065
  11. EVKEEZA [Suspect]
     Active Substance: EVINACUMAB-DGNB
     Indication: Type IIa hyperlipidaemia
     Route: 042
  12. EVKEEZA [Suspect]
     Active Substance: EVINACUMAB-DGNB
     Route: 058
  13. EVKEEZA [Suspect]
     Active Substance: EVINACUMAB-DGNB
     Route: 058
  14. EVKEEZA [Suspect]
     Active Substance: EVINACUMAB-DGNB
     Route: 042
  15. ROSUVASTATIN [Suspect]
     Active Substance: ROSUVASTATIN
     Indication: Type IIa hyperlipidaemia
     Dosage: 1 DOSAGE FORM, QD
     Route: 065
  16. ROSUVASTATIN [Suspect]
     Active Substance: ROSUVASTATIN
     Route: 065

REACTIONS (4)
  - International normalised ratio increased [Recovering/Resolving]
  - Hepatic steatosis [Recovering/Resolving]
  - Diarrhoea [Recovering/Resolving]
  - Nausea [Recovering/Resolving]
